APPROVED DRUG PRODUCT: CHOLESTYRAMINE LIGHT
Active Ingredient: CHOLESTYRAMINE
Strength: EQ 4GM RESIN/SCOOPFUL
Dosage Form/Route: POWDER;ORAL
Application: A209109 | Product #001
Applicant: MACLEODS PHARMACEUTICALS LTD
Approved: Oct 31, 2024 | RLD: No | RS: No | Type: DISCN